FAERS Safety Report 15466374 (Version 1)
Quarter: 2018Q4

REPORT INFORMATION
  Report Type: Report from Study
  Country: US (occurrence: US)
  Receive Date: 20181004
  Receipt Date: 20181004
  Transmission Date: 20190204
  Serious: Yes (Hospitalization, Other)
  Sender: FDA-Public Use
  Company Number: US-ACTELION-A-US2017-148504

PATIENT
  Age: 55 Year
  Sex: Female
  Weight: 52.15 kg

DRUGS (5)
  1. VELETRI [Suspect]
     Active Substance: EPOPROSTENOL
     Dosage: 16 NG/KG, PER MIN
     Route: 042
     Dates: start: 20170403
  2. VELETRI [Suspect]
     Active Substance: EPOPROSTENOL
     Dosage: 12 NG/KG, PER MIN
     Route: 042
  3. CROMOLYN SODIUM. [Concomitant]
     Active Substance: CROMOLYN SODIUM
  4. OPSUMIT [Suspect]
     Active Substance: MACITENTAN
     Indication: PULMONARY HYPERTENSION
     Dosage: 10 MG, QD
     Route: 048
     Dates: start: 20171227
  5. VELETRI [Suspect]
     Active Substance: EPOPROSTENOL
     Indication: PULMONARY HYPERTENSION
     Dosage: 16 NG/KG, PER MIN
     Route: 042
     Dates: start: 20170106

REACTIONS (16)
  - Malaise [Unknown]
  - Hypoxia [Unknown]
  - Pyrexia [Unknown]
  - Heart rate increased [Unknown]
  - Pain in jaw [Unknown]
  - Fatigue [Unknown]
  - Pulmonary arterial hypertension [Unknown]
  - Hypotension [Unknown]
  - Flushing [Unknown]
  - Rash [Unknown]
  - Rash pruritic [Unknown]
  - Condition aggravated [Unknown]
  - Dyspnoea [Unknown]
  - Lung transplant [Unknown]
  - Therapy non-responder [Recovered/Resolved]
  - Blister infected [Unknown]

NARRATIVE: CASE EVENT DATE: 20170106
